FAERS Safety Report 9347783 (Version 2)
Quarter: 2013Q3

REPORT INFORMATION
  Report Type: Spontaneous
  Country: US (occurrence: US)
  Receive Date: 20130614
  Receipt Date: 20130711
  Transmission Date: 20140515
  Serious: Yes (Hospitalization)
  Sender: FDA-Public Use
  Company Number: US-PFIZER INC-2013176131

PATIENT
  Age: 74 Year
  Sex: Female

DRUGS (3)
  1. SUTENT [Suspect]
     Indication: RENAL CANCER
     Dosage: 50 MG DAILY, CYCLIC (FOR 4 WEEKS THEN OFF 2 WEEKS)
     Route: 048
     Dates: start: 20121005, end: 20130610
  2. SUTENT [Suspect]
     Indication: NEOPLASM MALIGNANT
  3. COUMADINE [Suspect]
     Dosage: UNK

REACTIONS (1)
  - Gastrointestinal haemorrhage [Recovered/Resolved]
